FAERS Safety Report 24020681 (Version 2)
Quarter: 2024Q3

REPORT INFORMATION
  Report Type: Spontaneous
  Country: LV (occurrence: LV)
  Receive Date: 20240627
  Receipt Date: 20240710
  Transmission Date: 20241017
  Serious: Yes (Hospitalization, Other)
  Sender: MERCK KGAA
  Company Number: None

PATIENT
  Age: 43 Year
  Sex: Female
  Weight: 63 kg

DRUGS (2)
  1. EUTHYROX [Suspect]
     Active Substance: LEVOTHYROXINE SODIUM
     Indication: Thyroid hormones decreased
     Dosage: TWO TABLETS ONCE A DAY
     Route: 048
     Dates: start: 20240408
  2. EUTHYROX [Suspect]
     Active Substance: LEVOTHYROXINE SODIUM
     Dosage: THREE TABLETS ONCE A DAY
     Route: 048
     Dates: start: 20240605, end: 20240616

REACTIONS (5)
  - Discomfort [Recovering/Resolving]
  - Oedema [Recovering/Resolving]
  - Stomatitis [Recovering/Resolving]
  - Dizziness [Recovering/Resolving]
  - Vomiting [Recovering/Resolving]

NARRATIVE: CASE EVENT DATE: 20240416
